FAERS Safety Report 5706667-X (Version None)
Quarter: 2008Q2

REPORT INFORMATION
  Report Type: 
  Country: None (occurrence: None)
  Receive Date: 20080415
  Receipt Date: 20080415
  Transmission Date: 20081010
  Serious: No
  Sender: FDA-Public Use
  Company Number: None

PATIENT
  Age: 65 Year
  Sex: Female
  Weight: 72.5755 kg

DRUGS (1)
  1. TRAVATAN Z [Suspect]
     Indication: GLAUCOMA
     Dosage: ONE DROP IN EACH EYE BEFORE SLEEP INTRAOCULAR
     Route: 031
     Dates: start: 20080410, end: 20080414

REACTIONS (2)
  - PHARMACEUTICAL PRODUCT COMPLAINT [None]
  - SCRATCH [None]
